FAERS Safety Report 5124592-2 (Version None)
Quarter: 2006Q4

REPORT INFORMATION
  Report Type: 
  Country: None (occurrence: None)
  Receive Date: 20061011
  Receipt Date: 20060928
  Transmission Date: 20070319
  Serious: Yes (Other)
  Sender: FDA-Public Use
  Company Number: PHRM2006FR02711

PATIENT
  Sex: Female

DRUGS (1)
  1. SYNTOCINON [Suspect]
     Indication: NORMAL DELIVERY
     Dosage: 1 DF, ONCE/SINGLE
     Route: 042
     Dates: start: 20060928, end: 20060928

REACTIONS (1)
  - ATRIAL FIBRILLATION [None]
